FAERS Safety Report 19636932 (Version 1)
Quarter: 2021Q3

REPORT INFORMATION
  Report Type: Spontaneous
  Country: US (occurrence: US)
  Receive Date: 20210730
  Receipt Date: 20210730
  Transmission Date: 20211014
  Serious: Yes (Hospitalization, Other)
  Sender: FDA-Public Use
  Company Number: US-B.I. PHARMACEUTICALS,INC./RIDGEFIELD-2021-BI-117890

PATIENT
  Age: 74 Year
  Sex: Female

DRUGS (3)
  1. GABAPENTIN. [Concomitant]
     Active Substance: GABAPENTIN
     Indication: NEUROPATHY PERIPHERAL
  2. PRADAXA [Suspect]
     Active Substance: DABIGATRAN ETEXILATE MESYLATE
     Indication: CEREBRAL THROMBOSIS
     Dosage: 150 MG, 1 CAPSULE, TWICE DAILY
     Route: 048
     Dates: start: 20210108, end: 2021
  3. PRADAXA [Suspect]
     Active Substance: DABIGATRAN ETEXILATE MESYLATE
     Route: 048

REACTIONS (2)
  - Neuropathy peripheral [Not Recovered/Not Resolved]
  - Seizure [Recovered/Resolved]

NARRATIVE: CASE EVENT DATE: 202101
